FAERS Safety Report 5811762-0 (Version None)
Quarter: 2008Q3

REPORT INFORMATION
  Report Type: 
  Country: None (occurrence: None)
  Receive Date: 20080711
  Receipt Date: 20080626
  Transmission Date: 20090109
  Serious: Yes (Other)
  Sender: FDA-Public Use
  Company Number: S08-FRA-02312-01

PATIENT
  Age: 39 Year
  Sex: Female
  Weight: 54 kg

DRUGS (4)
  1. SEROPLEX (ESCITALOPRAM) [Suspect]
     Indication: DEPRESSION
     Dosage: 10 MG QD PO
     Route: 048
     Dates: start: 20080301, end: 20080307
  2. ZOPICLONE [Concomitant]
  3. TROPHICREME (ESTRIOL) [Concomitant]
  4. CYPROTERONE [Concomitant]

REACTIONS (3)
  - FEELING ABNORMAL [None]
  - INAPPROPRIATE AFFECT [None]
  - SPEECH DISORDER [None]
